FAERS Safety Report 8179503-2 (Version None)
Quarter: 2012Q1

REPORT INFORMATION
  Report Type: 
  Country: None (occurrence: None)
  Receive Date: 20120302
  Receipt Date: 20120224
  Transmission Date: 20120608
  Serious: Yes (Hospitalization, Other)
  Sender: FDA-Public Use
  Company Number: US-JNJFOC-20111006300

PATIENT
  Sex: Female

DRUGS (6)
  1. LEVAQUIN [Suspect]
     Indication: SINUSITIS
     Route: 048
  2. HUMALOG [Concomitant]
     Indication: DIABETES MELLITUS
     Dates: start: 20000101, end: 20100101
  3. BENICAR [Concomitant]
     Indication: BLOOD PRESSURE
     Dates: start: 20020101, end: 20100101
  4. PLAVIX [Concomitant]
     Indication: BLOOD PRESSURE
     Dates: start: 20000101, end: 20050101
  5. ACTOS [Concomitant]
     Indication: DIABETES MELLITUS
     Dates: start: 20050101, end: 20100101
  6. PLAVIX [Concomitant]
     Indication: CARDIAC DISORDER
     Dates: start: 20000101, end: 20050101

REACTIONS (2)
  - TENDONITIS [None]
  - ROTATOR CUFF SYNDROME [None]
